FAERS Safety Report 23028816 (Version 3)
Quarter: 2023Q4

REPORT INFORMATION
  Report Type: Report from Study
  Country: CN (occurrence: CN)
  Receive Date: 20231004
  Receipt Date: 20231205
  Transmission Date: 20240110
  Serious: Yes (Hospitalization, Other)
  Sender: FDA-Public Use
  Company Number: CN-AMGEN-CHNNI2023160279

PATIENT
  Age: 71 Year
  Sex: Male
  Weight: 66 kg

DRUGS (9)
  1. EVOLOCUMAB [Suspect]
     Active Substance: EVOLOCUMAB
     Indication: Dyslipidaemia
     Dosage: 420 MILLIGRAM
     Route: 058
     Dates: start: 20230221, end: 20230321
  2. ACETYLSALICYLIC ACID;ALUMINIUM;MAGNESIUM [Concomitant]
     Dosage: 1 UNK
     Route: 048
     Dates: start: 20230217
  3. Hybutimibe [Concomitant]
     Indication: Dyslipidaemia
     Dosage: 10 MILLIGRAM
     Route: 048
     Dates: start: 20230217
  4. METOPROLOL [Concomitant]
     Active Substance: METOPROLOL
     Dosage: 23.75-47.5 MILLIGRAM
     Route: 048
     Dates: start: 20230217
  5. PANTOPRAZOLE [Concomitant]
     Active Substance: PANTOPRAZOLE
     Dosage: 5 MILLIGRAM
     Route: 048
     Dates: start: 20230217
  6. ROSUVASTATIN [Concomitant]
     Active Substance: ROSUVASTATIN
     Indication: Dyslipidaemia
     Dosage: 10 MILLIGRAM
     Route: 048
     Dates: start: 20230217
  7. AMLODIPINE BESYLATE\PERINDOPRIL ARGININE [Concomitant]
     Active Substance: AMLODIPINE BESYLATE\PERINDOPRIL ARGININE
     Dosage: 1 UNK
     Route: 048
     Dates: start: 20230404
  8. TICAGRELOR [Concomitant]
     Active Substance: TICAGRELOR
     Dosage: 90 MILLIGRAM
     Route: 048
     Dates: start: 20230704, end: 20230910
  9. RABEPRAZOLE SODIUM [Concomitant]
     Active Substance: RABEPRAZOLE SODIUM
     Dosage: 10 MILLIGRAM
     Route: 048
     Dates: start: 20230801, end: 20230904

REACTIONS (2)
  - Coronary artery disease [Recovered/Resolved]
  - Hypokalaemia [Recovered/Resolved]

NARRATIVE: CASE EVENT DATE: 20230905
